FAERS Safety Report 14115619 (Version 1)
Quarter: 2017Q4

REPORT INFORMATION
  Report Type: Spontaneous
  Country: FR (occurrence: FR)
  Receive Date: 20171023
  Receipt Date: 20171023
  Transmission Date: 20180321
  Serious: Yes (Other)
  Sender: FDA-Public Use
  Company Number: FR-SA-2017SA201895

PATIENT

DRUGS (1)
  1. AUBAGIO [Suspect]
     Active Substance: TERIFLUNOMIDE
     Route: 048

REACTIONS (5)
  - Gastroenteritis [Unknown]
  - Condition aggravated [Unknown]
  - Drug ineffective [Unknown]
  - Visual impairment [Unknown]
  - Balance disorder [Unknown]
